FAERS Safety Report 7638198-4 (Version None)
Quarter: 2011Q3

REPORT INFORMATION
  Report Type: 
  Country: None (occurrence: None)
  Receive Date: 20110722
  Receipt Date: 20110722
  Transmission Date: 20111222
  Serious: Yes (Hospitalization, Other)
  Sender: FDA-Public Use
  Company Number: None

PATIENT
  Sex: Male
  Weight: 132.4503 kg

DRUGS (1)
  1. LANTUS [Suspect]
     Indication: DIABETES MELLITUS
     Dosage: 70 UNITS 2 TIMES A DAY
     Dates: start: 20110201, end: 20110601

REACTIONS (19)
  - DEPRESSION [None]
  - ANGER [None]
  - INSOMNIA [None]
  - ASTHENIA [None]
  - SUSPICIOUSNESS [None]
  - AGITATION [None]
  - FRUSTRATION [None]
  - RASH PRURITIC [None]
  - DIZZINESS [None]
  - NERVOUSNESS [None]
  - HEADACHE [None]
  - PAIN [None]
  - HYPERHIDROSIS [None]
  - CRYING [None]
  - OEDEMA [None]
  - ABDOMINAL PAIN UPPER [None]
  - SUICIDAL IDEATION [None]
  - AGGRESSION [None]
  - DISTURBANCE IN ATTENTION [None]
